FAERS Safety Report 8434823-9 (Version None)
Quarter: 2012Q2

REPORT INFORMATION
  Report Type: 
  Country: None (occurrence: None)
  Receive Date: 20120611
  Receipt Date: 20120611
  Transmission Date: 20120825
  Serious: Yes (Hospitalization)
  Sender: FDA-Public Use
  Company Number: None

PATIENT
  Sex: Female
  Weight: 62.6 kg

DRUGS (2)
  1. NOVOLOG [Suspect]
  2. LANTUS [Suspect]

REACTIONS (5)
  - VOMITING [None]
  - HYPERGLYCAEMIA [None]
  - DRUG DOSE OMISSION [None]
  - DIABETIC KETOACIDOSIS [None]
  - UPPER RESPIRATORY TRACT INFECTION [None]
